FAERS Safety Report 6496238-2 (Version None)
Quarter: 2009Q4

REPORT INFORMATION
  Report Type: 
  Country: None (occurrence: None)
  Receive Date: 20091214
  Receipt Date: 20091029
  Transmission Date: 20100525
  Serious: No
  Sender: FDA-Public Use
  Company Number: US-BRISTOL-MYERS SQUIBB COMPANY-14837348

PATIENT
  Age: 53 Year
  Sex: Male

DRUGS (2)
  1. ABILIFY [Suspect]
     Indication: BIPOLAR II DISORDER
     Dosage: INITIATED ON 2MG DAILY, INCREASED TO 5MG , DECREASED TO 2.5MG
  2. ZOLOFT [Concomitant]

REACTIONS (1)
  - DRY EYE [None]
